FAERS Safety Report 7509807-5 (Version None)
Quarter: 2011Q2

REPORT INFORMATION
  Report Type: 
  Country: None (occurrence: None)
  Receive Date: 20110527
  Receipt Date: 20110523
  Transmission Date: 20111010
  Serious: Yes (Hospitalization)
  Sender: FDA-Public Use
  Company Number: A0877265A

PATIENT
  Age: 52 Year
  Sex: Male

DRUGS (1)
  1. AVANDIA [Suspect]
     Indication: DIABETES MELLITUS
     Dosage: 2MG PER DAY
     Route: 048
     Dates: end: 20100501

REACTIONS (4)
  - MYOCARDIAL ISCHAEMIA [None]
  - FLUID RETENTION [None]
  - CATHETERISATION CARDIAC [None]
  - CARDIAC DISORDER [None]
